FAERS Safety Report 6976622-0 (Version None)
Quarter: 2010Q3

REPORT INFORMATION
  Report Type: 
  Country: None (occurrence: None)
  Receive Date: 20100910
  Receipt Date: 20100901
  Transmission Date: 20110219
  Serious: Yes (Death)
  Sender: FDA-Public Use
  Company Number: JP-SANOFI-AVENTIS-2010SA048542

PATIENT
  Age: 77 Year
  Sex: Male
  Weight: 62 kg

DRUGS (4)
  1. TAXOTERE [Suspect]
     Indication: PROSTATE CANCER
     Route: 042
     Dates: start: 20100803, end: 20100803
  2. DECADRON [Concomitant]
     Indication: PREMEDICATION
     Route: 041
     Dates: start: 20100803, end: 20100803
  3. GASTER D [Concomitant]
     Indication: PREMEDICATION
     Route: 048
     Dates: start: 20100803, end: 20100810
  4. DECADRON [Concomitant]
     Indication: PROSTATE CANCER
     Dosage: 1.0 MG IN THE MORNING, 0.5 MG IN THE EVENING.
     Route: 048
     Dates: start: 20100804, end: 20100810

REACTIONS (5)
  - ANURIA [None]
  - BLOOD PRESSURE DECREASED [None]
  - DISSEMINATED INTRAVASCULAR COAGULATION [None]
  - NEUTROPHIL COUNT DECREASED [None]
  - SEPTIC SHOCK [None]
